FAERS Safety Report 5132864-0 (Version None)
Quarter: 2006Q4

REPORT INFORMATION
  Report Type: 
  Country: None (occurrence: None)
  Receive Date: 20061023
  Receipt Date: 20061016
  Transmission Date: 20070319
  Serious: Yes (Other)
  Sender: FDA-Public Use
  Company Number: US-JNJFOC-20061003861

PATIENT
  Sex: Male
  Weight: 99.79 kg

DRUGS (5)
  1. EXTRA STRENGTH TYLENOL [Suspect]
     Route: 048
  2. EXTRA STRENGTH TYLENOL [Suspect]
     Indication: HEADACHE
     Dosage: 1000-2000 MG PER DAY, ORAL
     Route: 048
  3. PROZAC [Concomitant]
     Indication: ANXIETY
  4. TRAZODONE HCL [Concomitant]
     Indication: SLEEP DISORDER
  5. MOOD DISORDER MEDICATION [Concomitant]
     Indication: AFFECTIVE DISORDER

REACTIONS (3)
  - DRUG WITHDRAWAL HEADACHE [None]
  - HYPERTENSION [None]
  - INTENTIONAL DRUG MISUSE [None]
